FAERS Safety Report 9456736 (Version 1)
Quarter: 2013Q3

REPORT INFORMATION
  Report Type: Spontaneous
  Country: DK (occurrence: DK)
  Receive Date: 20130813
  Receipt Date: 20130813
  Transmission Date: 20140515
  Serious: Yes (Hospitalization)
  Sender: FDA-Public Use
  Company Number: DK-WATSON-2013-14151

PATIENT
  Age: 30 Year
  Sex: Female

DRUGS (1)
  1. METRONIDAZOLE (UNKNOWN) [Suspect]
     Indication: VAGINITIS BACTERIAL
     Dosage: 2 G, UNKNOWN
     Route: 048
     Dates: start: 20130726, end: 20130726

REACTIONS (4)
  - Vomiting [Unknown]
  - Abdominal pain [Unknown]
  - Syncope [Unknown]
  - Respiratory rate increased [Unknown]
